FAERS Safety Report 15008832 (Version 1)
Quarter: 2018Q2

REPORT INFORMATION
  Report Type: Spontaneous
  Country: PT (occurrence: PT)
  Receive Date: 20180613
  Receipt Date: 20180613
  Transmission Date: 20180711
  Serious: Yes (Other)
  Sender: FDA-Public Use
  Company Number: PT-009507513-1806PRT001239

PATIENT
  Age: 68 Year
  Sex: Female

DRUGS (5)
  1. VENLAFAXINE HYDROCHLORIDE. [Suspect]
     Active Substance: VENLAFAXINE HYDROCHLORIDE
  2. SIMVASTATIN. [Suspect]
     Active Substance: SIMVASTATIN
     Route: 048
  3. PITAVASTATIN CALCIUM [Suspect]
     Active Substance: PITAVASTATIN CALCIUM
  4. FLOXACILLIN [Suspect]
     Active Substance: FLUCLOXACILLIN
  5. DIPYRONE [Suspect]
     Active Substance: DIPYRONE

REACTIONS (4)
  - Cough [Recovered/Resolved]
  - Oedema peripheral [Recovered/Resolved]
  - Eyelid oedema [Recovered/Resolved]
  - Oropharyngeal discomfort [Recovered/Resolved]
